FAERS Safety Report 6868920-6 (Version None)
Quarter: 2010Q3

REPORT INFORMATION
  Report Type: 
  Country: None (occurrence: None)
  Receive Date: 20100722
  Receipt Date: 20080819
  Transmission Date: 20110219
  Serious: No
  Sender: FDA-Public Use
  Company Number: US-PFIZER INC-2008053327

PATIENT
  Sex: Male
  Weight: 95.5 kg

DRUGS (4)
  1. CHANTIX [Suspect]
     Indication: SMOKING CESSATION THERAPY
     Route: 048
     Dates: start: 20080623
  2. KLONOPIN [Concomitant]
  3. NEXIUM [Concomitant]
  4. VALTREX [Concomitant]

REACTIONS (5)
  - DISORIENTATION [None]
  - FEELING ABNORMAL [None]
  - FEELING JITTERY [None]
  - NERVOUSNESS [None]
  - TREMOR [None]
